FAERS Safety Report 8409986 (Version 8)
Quarter: 2012Q4

REPORT INFORMATION
  Report Type: 
  Country: US (occurrence: US)
  Receive Date: 20111227
  Receipt Date: 20120918
  Transmission Date: 20130627
  Serious: Yes (Hospitalization, Disabling, Other)
  Sender: FDA-Public Use
  Company Number: PHEH2011US009266

PATIENT
  Age: 26 Year
  Sex: Female

DRUGS (16)
  1. GILENYA [Suspect]
     Indication: MULTIPLE SCLEROSIS
     Dosage: 0.5 mg, QD
     Route: 048
     Dates: start: 20111115
  2. NEURONTIN [Suspect]
     Indication: PAIN
     Dosage: 300 mg, TID
     Dates: start: 201112
  3. NICODERM CQ [Suspect]
     Dosage: UNK UKN, UNK
     Route: 062
  4. PROPANOLOL [Concomitant]
     Dosage: 60 mg, UNK
  5. PROZAC [Concomitant]
     Dosage: 20 mg, UNK
  6. TALWIN [Concomitant]
     Dosage: UNK UKN, UNK
  7. IBUPROFEN [Concomitant]
     Dosage: UNK UKN, UNK
  8. ZANTAC [Concomitant]
     Dosage: UNK UKN, UNK
  9. VALIUM [Concomitant]
     Dosage: UNK UKN, UNK
  10. PHENERGAN [Concomitant]
     Dosage: UNK UKN, UNK
  11. LOMOTIL [Concomitant]
     Dosage: UNK UKN, UNK
  12. ZOFRAN [Concomitant]
     Dosage: UNK UKN, UNK
  13. PERCOCET [Concomitant]
     Dosage: UNK UKN, UNK
  14. VITAMIN C [Concomitant]
     Dosage: UNK UKN, UNK
  15. PRILOSEC [Concomitant]
  16. VESICARE [Concomitant]

REACTIONS (14)
  - Gait disturbance [Unknown]
  - Staring [Not Recovered/Not Resolved]
  - Deafness unilateral [Not Recovered/Not Resolved]
  - Application site swelling [Recovering/Resolving]
  - Application site pruritus [Unknown]
  - Blepharospasm [Not Recovered/Not Resolved]
  - Fatigue [Recovering/Resolving]
  - Vomiting [Recovering/Resolving]
  - Nausea [Recovering/Resolving]
  - Myalgia [Recovering/Resolving]
  - Pharyngitis streptococcal [Not Recovered/Not Resolved]
  - Nasopharyngitis [Not Recovered/Not Resolved]
  - Increased upper airway secretion [Not Recovered/Not Resolved]
  - Upper respiratory tract infection [Unknown]
